FAERS Safety Report 9702758 (Version 2)
Quarter: 2014Q1

REPORT INFORMATION
  Report Type: Spontaneous
  Country: JP (occurrence: JP)
  Receive Date: 20131121
  Receipt Date: 20140313
  Transmission Date: 20141002
  Serious: Yes (Other)
  Sender: FDA-Public Use
  Company Number: JP-BAYER-2013-139945

PATIENT
  Age: 64 Year
  Sex: Female
  Weight: 58 kg

DRUGS (12)
  1. STIVARGA [Suspect]
     Indication: GASTROINTESTINAL STROMAL TUMOUR
     Dosage: 160 MG, QD
     Route: 048
     Dates: start: 20130925, end: 20131012
  2. STIVARGA [Suspect]
     Indication: GASTROINTESTINAL STROMAL TUMOUR
     Dosage: 80 MG, QD
     Route: 048
     Dates: start: 20131107, end: 20131118
  3. STIVARGA [Suspect]
     Indication: GASTROINTESTINAL STROMAL TUMOUR
     Dosage: 80 MG, QD
     Route: 048
     Dates: start: 20131209, end: 20131215
  4. THYRADIN S [Concomitant]
     Dosage: DAILY DOSE 75 ?G
     Route: 048
  5. DECADRON [Concomitant]
     Indication: GASTROINTESTINAL STROMAL TUMOUR
     Dosage: DAILY DOSE 1 MG
     Route: 048
  6. METHYCOBAL [Concomitant]
     Indication: GASTROINTESTINAL STROMAL TUMOUR
     Dosage: DAILY DOSE 1.5 MG
     Route: 048
  7. URSO [Concomitant]
     Indication: PROPHYLAXIS
     Dosage: DAILY DOSE 600 MG
     Route: 048
  8. MAGMITT [Concomitant]
     Dosage: UNK
     Route: 048
  9. LAXOBERON [Concomitant]
     Dosage: UNK
     Route: 048
  10. SENNOSIDE [Concomitant]
     Dosage: UNK
     Route: 048
  11. PRIMPERAN [Concomitant]
     Dosage: DAILY DOSE 15 MG
     Route: 048
     Dates: start: 20131221
  12. FENTANYL CITRATE [Concomitant]
     Indication: GASTROINTESTINAL STROMAL TUMOUR
     Dosage: DAILY DOSE 1 MG
     Route: 062

REACTIONS (1)
  - Mental impairment [Recovered/Resolved]
